FAERS Safety Report 6083397-9 (Version None)
Quarter: 2009Q1

REPORT INFORMATION
  Report Type: 
  Country: None (occurrence: None)
  Receive Date: 20090219
  Receipt Date: 20090119
  Transmission Date: 20090719
  Serious: No
  Sender: FDA-Public Use
  Company Number: US-BAYER-200910204BCC

PATIENT
  Age: 80 Year
  Sex: Male
  Weight: 100 kg

DRUGS (3)
  1. ALEVE (CAPLET) [Suspect]
     Indication: SCIATICA
     Dosage: UNIT DOSE: 220 MG
     Dates: start: 20090114, end: 20090116
  2. METFORMIN HCL [Concomitant]
  3. VITAMINS [Concomitant]

REACTIONS (1)
  - NAUSEA [None]
